FAERS Safety Report 6437597-6 (Version None)
Quarter: 2009Q4

REPORT INFORMATION
  Report Type: 
  Country: None (occurrence: None)
  Receive Date: 20091109
  Receipt Date: 20091021
  Transmission Date: 20100525
  Serious: Yes (Hospitalization)
  Sender: FDA-Public Use
  Company Number: 003520

PATIENT
  Age: 81 Year
  Sex: Male
  Weight: 55.1 kg

DRUGS (3)
  1. MACUGEN [Suspect]
     Dosage: 0.3MG, SINGLE
     Dates: start: 20090427, end: 20090427
  2. XYLOCAINE [Concomitant]
  3. BENOXIL (OXYBUPROCAINE) [Concomitant]

REACTIONS (2)
  - CEREBRAL INFARCTION [None]
  - PALLOR [None]
